FAERS Safety Report 25376611 (Version 2)
Quarter: 2025Q2

REPORT INFORMATION
  Report Type: Report from Study
  Country: US (occurrence: US)
  Receive Date: 20250530
  Receipt Date: 20250604
  Transmission Date: 20250717
  Serious: Yes (Other)
  Sender: ABBVIE
  Company Number: US-ABBVIE-6250153

PATIENT
  Age: 78 Year
  Sex: Female
  Weight: 62 kg

DRUGS (1)
  1. RINVOQ [Suspect]
     Active Substance: UPADACITINIB
     Indication: Rheumatoid arthritis
     Dosage: FORM STRENGTH: 15 MG
     Route: 048
     Dates: start: 20240228

REACTIONS (7)
  - Neck pain [Recovering/Resolving]
  - Gait disturbance [Recovering/Resolving]
  - Arthritis [Not Recovered/Not Resolved]
  - Osteoarthritis [Recovering/Resolving]
  - Intervertebral disc disorder [Unknown]
  - Spinal disorder [Unknown]
  - Musculoskeletal stiffness [Recovering/Resolving]

NARRATIVE: CASE EVENT DATE: 20240101
